FAERS Safety Report 6674067-4 (Version None)
Quarter: 2010Q2

REPORT INFORMATION
  Report Type: 
  Country: None (occurrence: None)
  Receive Date: 20100407
  Receipt Date: 20100305
  Transmission Date: 20101027
  Serious: Yes (Congenital Anomaly, Other)
  Sender: FDA-Public Use
  Company Number: FR-001561

PATIENT

DRUGS (5)
  1. MENOPUR [Suspect]
     Indication: IN VITRO FERTILISATION
  2. DECAPEPTYL [Concomitant]
  3. TETRABID-ORGANON [Concomitant]
  4. UTROGESTAN [Concomitant]
  5. PROGESTERONE PHARLON [Concomitant]

REACTIONS (3)
  - CONJOINED TWINS [None]
  - DEVELOPMENTAL DELAY [None]
  - MATERNAL DRUGS AFFECTING FOETUS [None]
